FAERS Safety Report 19876795 (Version 1)
Quarter: 2021Q3

REPORT INFORMATION
  Report Type: Spontaneous
  Country: DE (occurrence: DE)
  Receive Date: 20210924
  Receipt Date: 20210924
  Transmission Date: 20211014
  Serious: Yes (Hospitalization)
  Sender: FDA-Public Use
  Company Number: DE-ROCHE-2886470

PATIENT
  Sex: Female

DRUGS (2)
  1. KADCYLA [Suspect]
     Active Substance: ADO-TRASTUZUMAB EMTANSINE
     Route: 042
  2. KADCYLA [Suspect]
     Active Substance: ADO-TRASTUZUMAB EMTANSINE
     Indication: BREAST CANCER
     Dosage: PARAVENOUSLY
     Route: 042

REACTIONS (4)
  - Blister rupture [Not Recovered/Not Resolved]
  - Blister [Recovering/Resolving]
  - Erythema [Not Recovered/Not Resolved]
  - Paravenous drug administration [Unknown]

NARRATIVE: CASE EVENT DATE: 20210805
